FAERS Safety Report 7361415-5 (Version None)
Quarter: 2011Q1

REPORT INFORMATION
  Report Type: 
  Country: None (occurrence: None)
  Receive Date: 20110318
  Receipt Date: 20110314
  Transmission Date: 20110831
  Serious: Yes (Death, Life-Threatening, Other)
  Sender: FDA-Public Use
  Company Number: US-ROXANE LABORATORIES, INC.-2011-RO-00306RO

PATIENT
  Age: 80 Year
  Sex: Female

DRUGS (8)
  1. DIGOXIN [Suspect]
     Indication: CARDIAC FAILURE
     Dosage: 0.125 MG
  2. METOPROLOL SUCCINATE [Suspect]
     Indication: CARDIAC FAILURE
     Dosage: 100 MG
  3. METHOTREXATE [Suspect]
     Indication: RHEUMATOID ARTHRITIS
     Dosage: 20 MG
  4. NAPROXEN [Suspect]
     Dosage: 1100 MG
  5. ACETAMINOPHEN [Suspect]
     Indication: RHEUMATOID ARTHRITIS
     Dosage: 1300 MG
  6. FUROSEMIDE [Suspect]
     Dosage: 40 MG
  7. CELECOXIB [Suspect]
     Indication: ARTHRALGIA
  8. LISINOPRIL [Suspect]
     Indication: CARDIAC FAILURE
     Dosage: 10 MG

REACTIONS (3)
  - DEATH [None]
  - HAEMORRHAGE [None]
  - OEDEMA [None]
